FAERS Safety Report 8890621 (Version 4)
Quarter: 2014Q1

REPORT INFORMATION
  Report Type: Report from Study
  Country: US (occurrence: US)
  Receive Date: 20121107
  Receipt Date: 20140228
  Transmission Date: 20141002
  Serious: Yes (Hospitalization)
  Sender: FDA-Public Use
  Company Number: US-BAYER-2012-100905

PATIENT
  Age: 70 Year
  Sex: Male

DRUGS (15)
  1. NEXAVAR [Suspect]
     Indication: HEPATIC CANCER
     Dosage: UNK
     Dates: start: 20120917, end: 20120917
  2. NEXAVAR [Suspect]
     Indication: HEPATIC CANCER
     Dosage: 200 MG, BID
     Dates: start: 20120924
  3. NEXAVAR [Suspect]
     Indication: HEPATIC CANCER
     Dosage: 400 MG, BID
     Route: 048
     Dates: start: 20120917
  4. NEXAVAR [Suspect]
     Indication: HEPATIC CANCER
     Dosage: 200 MG AM 400 MG PM
     Route: 048
     Dates: start: 201210, end: 201210
  5. NEXAVAR [Suspect]
     Indication: HEPATIC CANCER
     Dosage: 400 MG, BID
     Route: 048
     Dates: start: 201210
  6. NEXAVAR [Suspect]
     Indication: HEPATIC CANCER
     Dosage: 2-3 PILLS A DAY
  7. NEXAVAR [Suspect]
     Indication: HEPATIC CANCER
     Dosage: 2 AM AND 1 PM DAILY
     Route: 048
     Dates: start: 20120914
  8. NEXAVAR [Suspect]
     Indication: HEPATIC CANCER
     Dosage: 400 MG, BID (4X200MG)
     Route: 048
  9. ANTIHYPERTENSIVES [Concomitant]
  10. FUROSEMIDE [Concomitant]
  11. AMLODIPINE [Concomitant]
  12. BACLOFEN [Concomitant]
  13. PRILOSEC [Concomitant]
  14. TRAMADOL [Concomitant]
  15. OXYCODONE [Concomitant]

REACTIONS (8)
  - Diarrhoea [Not Recovered/Not Resolved]
  - Constipation [Recovering/Resolving]
  - Haematochezia [Not Recovered/Not Resolved]
  - Sensation of heaviness [Recovering/Resolving]
  - Blood pressure increased [Recovering/Resolving]
  - Groin pain [Not Recovered/Not Resolved]
  - Pyrexia [None]
  - Chills [None]
